FAERS Safety Report 6381480-1 (Version None)
Quarter: 2009Q3

REPORT INFORMATION
  Report Type: 
  Country: None (occurrence: None)
  Receive Date: 20090924
  Receipt Date: 20090911
  Transmission Date: 20100115
  Serious: Yes (Hospitalization, Other)
  Sender: FDA-Public Use
  Company Number: 233494K09USA

PATIENT
  Sex: Female
  Weight: 89 kg

DRUGS (5)
  1. REBIF [Suspect]
     Indication: MULTIPLE SCLEROSIS
     Dosage: 44 MCG, 3 IN 1 WEEKS, SUBCUTANEOUS
     Route: 058
     Dates: start: 20070101, end: 20090208
  2. SOLU-MEDROL [Suspect]
     Indication: MULTIPLE SCLEROSIS RELAPSE
     Dosage: INTRAVENOUS, NOT OTHERWISE SPECIFIED
     Route: 042
     Dates: end: 20090101
  3. ZYRTEC [Concomitant]
  4. UNSPECIFIED HIGH BLOOD PRESSURE MEDICATIONS (ANTHHYPERTENSIVES) [Concomitant]
  5. UNSPECIFIED HIGH CHOLESTEROL MEDICATIONS [Concomitant]

REACTIONS (8)
  - ABASIA [None]
  - ANAEMIA [None]
  - ANASTOMOTIC COMPLICATION [None]
  - BLOOD CHOLESTEROL INCREASED [None]
  - DEPRESSION [None]
  - GASTROINTESTINAL HAEMORRHAGE [None]
  - MULTIPLE SCLEROSIS RELAPSE [None]
  - OESOPHAGEAL DISORDER [None]
